FAERS Safety Report 12548663 (Version 2)
Quarter: 2016Q4

REPORT INFORMATION
  Report Type: Spontaneous
  Country: US (occurrence: US)
  Receive Date: 20160712
  Receipt Date: 20161107
  Transmission Date: 20170207
  Serious: Yes (Other)
  Sender: FDA-Public Use
  Company Number: US-TEVA-623139USA

PATIENT
  Sex: Female

DRUGS (2)
  1. CLONAZEPAM. [Concomitant]
     Active Substance: CLONAZEPAM
  2. LAMOTRIGINE. [Suspect]
     Active Substance: LAMOTRIGINE
     Indication: SEIZURE
     Route: 048
     Dates: start: 20151115

REACTIONS (24)
  - Brain injury [Unknown]
  - Sleep terror [Unknown]
  - Vomiting [Unknown]
  - Nightmare [Unknown]
  - Sneezing [Unknown]
  - Product substitution issue [Unknown]
  - Irritability [Unknown]
  - Pain [Unknown]
  - Emotional distress [Unknown]
  - Rib fracture [Recovered/Resolved]
  - Limb injury [Recovered/Resolved]
  - Seizure [Unknown]
  - Headache [Unknown]
  - Abnormal dreams [Unknown]
  - Aggression [Unknown]
  - Rhinorrhoea [Unknown]
  - Suicidal ideation [Unknown]
  - Suicidal behaviour [Unknown]
  - Nausea [Unknown]
  - Oropharyngeal pain [Unknown]
  - Affect lability [Unknown]
  - Drug ineffective [Unknown]
  - Diarrhoea [Unknown]
  - Fall [Recovered/Resolved]

NARRATIVE: CASE EVENT DATE: 2015
